FAERS Safety Report 4796488-7 (Version None)
Quarter: 2005Q4

REPORT INFORMATION
  Report Type: 
  Country: None (occurrence: None)
  Receive Date: 20051013
  Receipt Date: 20051004
  Transmission Date: 20060501
  Serious: Yes (Death, Hospitalization)
  Sender: FDA-Public Use
  Company Number: JP-JNJFOC-20050903348

PATIENT
  Age: 60 Year
  Sex: Female

DRUGS (14)
  1. OFLOCET [Suspect]
     Route: 042
     Dates: start: 20050113, end: 20050114
  2. TOPALGIC [Suspect]
     Route: 048
     Dates: start: 20050113, end: 20050114
  3. TOPALGIC [Suspect]
     Route: 048
     Dates: start: 20050113, end: 20050114
  4. PROFENID [Suspect]
     Route: 042
     Dates: start: 20050113, end: 20050114
  5. PROFENID [Suspect]
     Route: 042
     Dates: start: 20050113, end: 20050114
  6. AMIKLIN [Suspect]
     Route: 042
     Dates: start: 20050113, end: 20050114
  7. SPASFON [Suspect]
     Route: 048
     Dates: start: 20050113, end: 20050114
  8. SPASFON [Suspect]
     Indication: ABDOMINAL PAIN
     Route: 048
     Dates: start: 20050113, end: 20050114
  9. FOSAMAX [Suspect]
     Indication: OSTEOPOROSIS
     Route: 048
     Dates: end: 20050114
  10. IDEOS [Concomitant]
     Route: 048
  11. IDEOS [Concomitant]
     Route: 048
  12. ART 50 [Concomitant]
     Route: 048
  13. BROMAZEPAM [Concomitant]
     Route: 065
  14. MOPRAL [Concomitant]
     Route: 065
     Dates: start: 20050112

REACTIONS (2)
  - GENERAL PHYSICAL HEALTH DETERIORATION [None]
  - SEPSIS [None]
